FAERS Safety Report 9288413 (Version 1)
Quarter: 2013Q2

REPORT INFORMATION
  Report Type: Report from Study
  Country: DK (occurrence: DK)
  Receive Date: 20130514
  Receipt Date: 20130514
  Transmission Date: 20140414
  Serious: Yes (Other)
  Sender: FDA-Public Use
  Company Number: DK-JNJFOC-20130504832

PATIENT
  Age: 17 Year
  Sex: Male

DRUGS (2)
  1. REMICADE [Suspect]
     Indication: CROHN^S DISEASE
     Dosage: AT 32ND INFUSION
     Route: 042
     Dates: start: 20100906
  2. REMICADE [Suspect]
     Indication: CROHN^S DISEASE
     Dosage: 400 (UNITS UNSPECIFIED)
     Route: 042

REACTIONS (1)
  - Psoriasis [Unknown]
